FAERS Safety Report 11848869 (Version 1)
Quarter: 2015Q4

REPORT INFORMATION
  Report Type: Spontaneous
  Country: GR (occurrence: GR)
  Receive Date: 20151218
  Receipt Date: 20151218
  Transmission Date: 20160305
  Serious: Yes (Hospitalization)
  Sender: FDA-Public Use
  Company Number: GR-009507513-1512GRC007873

PATIENT
  Age: 38 Year
  Sex: Female

DRUGS (8)
  1. FENTANYL. [Suspect]
     Active Substance: FENTANYL
     Dosage: 0.1 UNK, UNK
  2. ETOMIDATE. [Suspect]
     Active Substance: ETOMIDATE
     Dosage: 20 MG, UNK
  3. ROCURONIUM BROMIDE. [Suspect]
     Active Substance: ROCURONIUM BROMIDE
     Dosage: 70 MG, UNK
  4. ROCURONIUM BROMIDE. [Suspect]
     Active Substance: ROCURONIUM BROMIDE
     Dosage: 60 MG, UNK
  5. MIDAZOLAM [Suspect]
     Active Substance: MIDAZOLAM\MIDAZOLAM HYDROCHLORIDE
     Dosage: 2 UNK, UNK
  6. FENTANYL. [Suspect]
     Active Substance: FENTANYL
     Dosage: 0.1 MG, UNK
  7. MIDAZOLAM [Suspect]
     Active Substance: MIDAZOLAM\MIDAZOLAM HYDROCHLORIDE
     Dosage: 2 MG, UNK
  8. ETOMIDATE. [Suspect]
     Active Substance: ETOMIDATE
     Dosage: 20 UNK, UNK

REACTIONS (1)
  - Acquired haemophilia [Recovered/Resolved]
